FAERS Safety Report 10062031 (Version 1)
Quarter: 2014Q2

REPORT INFORMATION
  Report Type: Spontaneous
  Country: CH (occurrence: None)
  Receive Date: 20140403
  Receipt Date: 20140403
  Transmission Date: 20141212
  Serious: Yes (Hospitalization)
  Sender: FDA-Public Use
  Company Number: 7279232

PATIENT
  Age: 84 Year
  Sex: Male

DRUGS (17)
  1. EUTHYROX (LEVOTHYROXINE SODIUM) (LEVOTHYROXINE SODIUM) [Suspect]
     Indication: PRODUCT USED FOR UNKNOWN INDICATION
     Dosage: 75 MCG (75 MCG, 1 IN 1 D), ORAL
     Route: 048
  2. MARCOUMAR [Suspect]
     Indication: ATRIAL FLUTTER
     Dosage: (3 MG, AS REQUIRED), ORAL?
     Route: 048
     Dates: end: 201403
  3. ALLOPUR [Suspect]
     Indication: PRODUCT USED FOR UNKNOWN INDICATION
     Dosage: 100 MG (100 MG, 1 IN 1 D), ORAL
     Route: 048
  4. PANTOPRAZOLE (PANTOPRAZOLE) (PANTOPRAZOLE) [Suspect]
     Indication: PRODUCT USED FOR UNKNOWN INDICATION
     Dosage: 40 MG (40 MG, 1-0-0), ORAL
     Route: 048
  5. ATORVASTATIN (ATORVASTATIN) (ATORVASTATIN) [Suspect]
     Indication: PRODUCT USED FOR UNKNOWN INDICATION
     Dosage: 20 MG (20 MG, 1 IN 1 D), ORAL
     Route: 048
  6. BUDENOFALK (BUDESONIDE) (BUDESONIDE) [Concomitant]
  7. ALDACTONE /00006201/ (SPIRONOLACTONE) (SPIRONOLACTONE) [Concomitant]
  8. CELLECPT (MYCOPHENOLATE MOFETIL) (MYCOPHENOLATE MOFETIL) [Concomitant]
  9. RAPAMUNE (SIROLIMUS) (SIROLIMUS) [Concomitant]
  10. FOSAMAX (ALENDRONATE SODIUM) (ALENDRONATE SODIUM) [Concomitant]
  11. TORASEMID (TORASEMIDE) (TORASEMIDE) [Concomitant]
  12. METOLAZONE (METOLAZONE) (METOLAZONE) [Concomitant]
  13. SYMBICORT (BUDESONIDE W/FORMOTEROL FUMARATE) (FORMOTEROL FUMARATE, BUDESONIDE)? [Concomitant]
  14. NOVALGIN /00039501/ (METAMIZOLE SODIUM) (METAMIZOLE SODIUM) [Concomitant]
  15. KALIUM /00031402/ (POTASSIUM CHLORIDE) (POTASSIUM CHLORIDE) [Concomitant]
  16. ZOLDORM (ZOLPIDEM TARTRATE) (ZOLPIDEM TARTRATE) [Concomitant]
  17. SIFROL (PRAMIPEXOLE DIHYDROCHLORIDE) (PRAMIPEXOLE DIHYDROCHLORIDE)? [Concomitant]

REACTIONS (3)
  - International normalised ratio increased [None]
  - Diverticulitis intestinal haemorrhagic [None]
  - Anaemia [None]
